FAERS Safety Report 18464795 (Version 1)
Quarter: 2020Q4

REPORT INFORMATION
  Report Type: Spontaneous
  Country: NL (occurrence: NL)
  Receive Date: 20201104
  Receipt Date: 20201104
  Transmission Date: 20210114
  Serious: Yes (Death, Hospitalization)
  Sender: FDA-Public Use
  Company Number: NL-MEITHEAL PHARMACEUTICALS-2020MHL00073

PATIENT
  Age: 41 Year
  Sex: Male

DRUGS (3)
  1. UNSPECIFIED PLATINUM [Concomitant]
     Route: 065
  2. BLEOMYCIN [Suspect]
     Active Substance: BLEOMYCIN SULFATE
     Route: 065
  3. ETOPOSIDE. [Concomitant]
     Active Substance: ETOPOSIDE
     Route: 065

REACTIONS (4)
  - Acute respiratory distress syndrome [Fatal]
  - Traumatic lung injury [Fatal]
  - Febrile neutropenia [Unknown]
  - Organising pneumonia [Fatal]
